FAERS Safety Report 9050332 (Version 3)
Quarter: 2013Q2

REPORT INFORMATION
  Report Type: Spontaneous
  Country: AU (occurrence: AU)
  Receive Date: 20130205
  Receipt Date: 20130410
  Transmission Date: 20140414
  Serious: Yes (Death)
  Sender: FDA-Public Use
  Company Number: PHHY2013AU010641

PATIENT
  Sex: Female
  Weight: 74 kg

DRUGS (10)
  1. ACLASTA [Suspect]
     Dosage: 5 MG/ 100ML YEARLY
     Route: 042
     Dates: start: 20120309
  2. CALTRATE WITH VITAMIN D [Concomitant]
     Dosage: 600 MG, 1 DF QD
  3. EPILIM [Concomitant]
     Dosage: UNK
  4. METOPROLOL SUCCINATE [Concomitant]
     Dosage: UNK
  5. NATRILIX [Concomitant]
     Dosage: UNK
  6. OROXINE [Concomitant]
     Dosage: UNK
  7. PANADOL OSTEO [Concomitant]
     Dosage: UNK
  8. PLAQUENIL [Concomitant]
     Dosage: 400 MG, QD WITH FOOD
  9. SOMAC [Concomitant]
     Dosage: UNK
  10. WARFARIN SODIUM [Concomitant]
     Dosage: UNK

REACTIONS (2)
  - Death [Fatal]
  - Arthralgia [Unknown]
